FAERS Safety Report 18417653 (Version 1)
Quarter: 2020Q4

REPORT INFORMATION
  Report Type: Spontaneous
  Country: US (occurrence: US)
  Receive Date: 20201022
  Receipt Date: 20201022
  Transmission Date: 20210114
  Serious: No
  Sender: FDA-Public Use
  Company Number: 2020SGN02285

PATIENT
  Sex: Female

DRUGS (3)
  1. TUKYSA [Suspect]
     Active Substance: TUCATINIB
     Indication: BREAST CANCER FEMALE
     Dosage: 150 MG, BID
  2. CAPECITABINE. [Suspect]
     Active Substance: CAPECITABINE
     Indication: BREAST CANCER FEMALE
     Dosage: 1000 MG IN AM AND 1500 MG IN PM
  3. HERCEPTIN [Concomitant]
     Active Substance: TRASTUZUMAB
     Indication: BREAST CANCER FEMALE
     Dosage: UNK, Q3WEEKS

REACTIONS (8)
  - Hyperaesthesia [Unknown]
  - Back pain [Unknown]
  - Diarrhoea [Unknown]
  - Pain [Recovering/Resolving]
  - Emotional disorder [Unknown]
  - Drug ineffective [Unknown]
  - Adverse drug reaction [Unknown]
  - Liver function test abnormal [Unknown]
